FAERS Safety Report 25246667 (Version 1)
Quarter: 2025Q2

REPORT INFORMATION
  Report Type: Spontaneous
  Country: FR (occurrence: FR)
  Receive Date: 20250428
  Receipt Date: 20250428
  Transmission Date: 20250717
  Serious: Yes (Hospitalization)
  Sender: MYLAN
  Company Number: None

PATIENT
  Age: 76 Year
  Sex: Female
  Weight: 70 kg

DRUGS (1)
  1. VALSARTAN [Suspect]
     Active Substance: VALSARTAN
     Indication: Hypertension
     Dosage: 80 MILLIGRAM, QD
     Dates: start: 202501, end: 20250322

REACTIONS (2)
  - Hepatic cytolysis [Recovering/Resolving]
  - Gastrointestinal wall thickening [Not Recovered/Not Resolved]

NARRATIVE: CASE EVENT DATE: 20250323
